FAERS Safety Report 8518194-5 (Version None)
Quarter: 2012Q3

REPORT INFORMATION
  Report Type: 
  Country: None (occurrence: None)
  Receive Date: 20120718
  Receipt Date: 20111107
  Transmission Date: 20120928
  Serious: No
  Sender: FDA-Public Use
  Company Number: US-BRISTOL-MYERS SQUIBB COMPANY-16202400

PATIENT
  Age: 70 Year
  Sex: Female
  Weight: 79 kg

DRUGS (8)
  1. WARFARIN SODIUM [Suspect]
  2. PRADAXA [Concomitant]
  3. METOPROLOL SUCCINATE [Concomitant]
  4. ASPIRIN [Concomitant]
  5. INSULIN [Concomitant]
  6. LOTREL [Concomitant]
  7. COUMADIN [Suspect]
     Dosage: DISCONTINUED IN 2004 OR 2005
  8. AMPICILLIN [Suspect]

REACTIONS (2)
  - GAIT DISTURBANCE [None]
  - HYPERSENSITIVITY [None]
